FAERS Safety Report 20024617 (Version 1)
Quarter: 2021Q4

REPORT INFORMATION
  Report Type: Other
  Country: AU (occurrence: AU)
  Receive Date: 20211102
  Receipt Date: 20211102
  Transmission Date: 20220303
  Serious: Yes (Other)
  Sender: FDA-Public Use
  Company Number: AU-COLLEGIUM PHARMACEUTICAL, INC.-2021CGM01141

PATIENT
  Sex: Female

DRUGS (3)
  1. TAPENTADOL [Suspect]
     Active Substance: TAPENTADOL
     Indication: Back pain
     Dosage: 50 MG
     Route: 048
     Dates: start: 20140822
  2. OXYCONTIN [Concomitant]
     Active Substance: OXYCODONE HYDROCHLORIDE
  3. OXYCODONE HYDROCHLORIDE [Concomitant]
     Active Substance: OXYCODONE HYDROCHLORIDE

REACTIONS (7)
  - Seizure [Unknown]
  - Restless legs syndrome [Unknown]
  - Head discomfort [Unknown]
  - Dizziness [Unknown]
  - Tremor [Unknown]
  - Drug ineffective [Unknown]
  - Intentional product use issue [Unknown]
